FAERS Safety Report 7300310-4 (Version None)
Quarter: 2011Q1

REPORT INFORMATION
  Report Type: 
  Country: None (occurrence: None)
  Receive Date: 20110217
  Receipt Date: 20110204
  Transmission Date: 20110831
  Serious: No
  Sender: FDA-Public Use
  Company Number: US-BIOGENIDEC-2011BI005258

PATIENT
  Age: 52 Year
  Sex: Male

DRUGS (2)
  1. TYSABRI [Suspect]
     Indication: MULTIPLE SCLEROSIS
     Route: 042
     Dates: start: 20100128
  2. AMPYRA [Concomitant]
     Dates: start: 20110101

REACTIONS (3)
  - PAIN IN EXTREMITY [None]
  - MYALGIA [None]
  - ARTHRALGIA [None]
